FAERS Safety Report 18396504 (Version 1)
Quarter: 2020Q4

REPORT INFORMATION
  Report Type: Spontaneous
  Country: JP (occurrence: JP)
  Receive Date: 20201019
  Receipt Date: 20201019
  Transmission Date: 20210114
  Serious: Yes (Other)
  Sender: FDA-Public Use
  Company Number: JP-ORION CORPORATION ORION PHARMA-ENTC2020-0288

PATIENT
  Age: 64 Year
  Sex: Female

DRUGS (6)
  1. ZONISAMIDE. [Concomitant]
     Active Substance: ZONISAMIDE
     Route: 065
  2. STALEVO [Suspect]
     Active Substance: CARBIDOPA\ENTACAPONE\LEVODOPA
     Indication: PARKINSON^S DISEASE
     Dosage: 10 AND 15 O^CLOCK
     Route: 048
  3. CARBIDOPA PLUS LEVODOPA [Concomitant]
     Route: 065
  4. ISTRADEFYLLINE [Concomitant]
     Active Substance: ISTRADEFYLLINE
     Route: 065
  5. ROTIGOTINE [Concomitant]
     Active Substance: ROTIGOTINE
     Route: 065
  6. SELEGILINE HYDROCHLORIDE. [Concomitant]
     Active Substance: SELEGILINE HYDROCHLORIDE
     Route: 065

REACTIONS (11)
  - Depression [Recovering/Resolving]
  - Myelopathy [Recovering/Resolving]
  - Dyskinesia [Recovering/Resolving]
  - Lumbar spinal stenosis [Unknown]
  - Movement disorder [Unknown]
  - Sleep apnoea syndrome [Recovering/Resolving]
  - Weight increased [Unknown]
  - Sleep talking [Recovering/Resolving]
  - Parkinson^s disease [Unknown]
  - Hallucination [Unknown]
  - Rapid eye movement sleep behaviour disorder [Unknown]
